FAERS Safety Report 21172756 (Version 1)
Quarter: 2022Q3

REPORT INFORMATION
  Report Type: Spontaneous
  Country: US (occurrence: None)
  Receive Date: 20220804
  Receipt Date: 20220804
  Transmission Date: 20221026
  Serious: Yes (Hospitalization)
  Sender: FDA-Public Use
  Company Number: None

PATIENT
  Sex: Female
  Weight: 82.7 kg

DRUGS (2)
  1. CARBOPLATIN [Suspect]
     Active Substance: CARBOPLATIN
  2. TAXOL [Concomitant]
     Active Substance: PACLITAXEL

REACTIONS (5)
  - Ascites [None]
  - Metastases to peritoneum [None]
  - Small intestinal obstruction [None]
  - Vulvovaginal pruritus [None]
  - Vaginal discharge [None]

NARRATIVE: CASE EVENT DATE: 20220725
